FAERS Safety Report 6306655-9 (Version None)
Quarter: 2009Q3

REPORT INFORMATION
  Report Type: 
  Country: None (occurrence: None)
  Receive Date: 20090812
  Receipt Date: 20090810
  Transmission Date: 20100115
  Serious: Yes (Hospitalization)
  Sender: FDA-Public Use
  Company Number: D0062591A

PATIENT
  Age: 21 Year
  Sex: Female
  Weight: 58.7 kg

DRUGS (2)
  1. CEFUROXIM AXETIL [Suspect]
     Indication: RESPIRATORY TRACT INFECTION
     Dosage: 500MG TWICE PER DAY
     Route: 048
     Dates: start: 20090401, end: 20090408
  2. DOXYCYCLIN [Suspect]
     Indication: RESPIRATORY TRACT INFECTION
     Dosage: 100MG PER DAY
     Route: 048
     Dates: start: 20090327, end: 20090331

REACTIONS (3)
  - ASTHENIA [None]
  - DIARRHOEA [None]
  - GASTROENTERITIS CLOSTRIDIAL [None]
